FAERS Safety Report 6544715-8 (Version None)
Quarter: 2010Q1

REPORT INFORMATION
  Report Type: 
  Country: None (occurrence: None)
  Receive Date: 20100121
  Receipt Date: 20100115
  Transmission Date: 20100710
  Serious: Yes (Hospitalization)
  Sender: FDA-Public Use
  Company Number: PHHO2009BR14783

PATIENT
  Sex: Female
  Weight: 71.5 kg

DRUGS (7)
  1. BLINDED ALISKIREN ALI+TAB+CF [Suspect]
     Indication: CARDIAC FAILURE
     Dosage: NO TREATMENT
  2. BLINDED ENALAPRIL COMP-ENA+ [Suspect]
     Indication: CARDIAC FAILURE
     Dosage: NO TREATMENT
  3. BLINDED NO TREATMENT RECEIVED NOMED [Suspect]
     Indication: CARDIAC FAILURE
     Dosage: NO TREATMENT
  4. COMPARATOR ENALAPRIL [Suspect]
     Indication: CARDIAC FAILURE
     Dosage: 10 MG, BID
     Route: 048
     Dates: start: 20091026, end: 20091030
  5. DIGOXIN [Concomitant]
     Dosage: 0.125 MG / DAY
     Dates: start: 20070315
  6. CARVEDILOL [Concomitant]
     Dosage: 25 MG, BID
     Dates: start: 20070220
  7. ESPIRONOLACTONA [Concomitant]
     Dosage: 25 MG / DAY
     Dates: start: 20070315

REACTIONS (2)
  - PALPITATIONS [None]
  - VENTRICULAR ARRHYTHMIA [None]
